FAERS Safety Report 17620694 (Version 1)
Quarter: 2020Q2

REPORT INFORMATION
  Report Type: Spontaneous
  Country: RS (occurrence: RS)
  Receive Date: 20200403
  Receipt Date: 20200403
  Transmission Date: 20200713
  Serious: Yes (Other)
  Sender: FDA-Public Use
  Company Number: RS-SGP-000001

PATIENT
  Age: 28 Year

DRUGS (1)
  1. METHYLPREDNISOLONE. [Suspect]
     Active Substance: METHYLPREDNISOLONE
     Indication: MULTIPLE SCLEROSIS RELAPSE
     Dosage: TOTAL DOSE 3 GRAM OVER THE THREE DAYS
     Route: 042

REACTIONS (1)
  - Drug-induced liver injury [Recovered/Resolved]
